FAERS Safety Report 4795733-1 (Version None)
Quarter: 2005Q3

REPORT INFORMATION
  Report Type: 
  Country: None (occurrence: None)
  Receive Date: 20050916
  Receipt Date: 20050712
  Transmission Date: 20060218
  Serious: Yes (Hospitalization)
  Sender: FDA-Public Use
  Company Number: US-JNJFOC-20050702882

PATIENT
  Age: 68 Year
  Sex: Female

DRUGS (2)
  1. TOPAMAX [Suspect]
     Indication: DRUG USE FOR UNKNOWN INDICATION
     Dosage: 25 MG, 2 IN 1 DAY; 25 MG
  2. TOPRAL XL (SULTOPRIDE) [Suspect]
     Indication: DRUG USE FOR UNKNOWN INDICATION
     Dosage: 25 MG, 2 IN 1 DAY

REACTIONS (5)
  - BRADYCARDIA [None]
  - DIZZINESS [None]
  - DRUG DISPENSING ERROR [None]
  - MEDICATION ERROR [None]
  - NAUSEA [None]
